FAERS Safety Report 11183298 (Version 1)
Quarter: 2015Q2

REPORT INFORMATION
  Report Type: Spontaneous
  Country: US (occurrence: US)
  Receive Date: 20150611
  Receipt Date: 20150611
  Transmission Date: 20150821
  Serious: No
  Sender: FDA-Public Use
  Company Number: US-009507513-1506USA003579

PATIENT
  Age: 15 Year
  Sex: Female
  Weight: 40.82 kg

DRUGS (2)
  1. IMPLANON [Suspect]
     Active Substance: ETONOGESTREL
     Indication: CONTRACEPTION
     Dosage: 1 IMPLANT/3 YEARS
     Route: 059
     Dates: start: 20130806
  2. IMPLANON [Suspect]
     Active Substance: ETONOGESTREL
     Indication: MENSTRUAL DISORDER

REACTIONS (7)
  - Malaise [Unknown]
  - Limb discomfort [Unknown]
  - Weight decreased [Unknown]
  - Implant site pain [Unknown]
  - Headache [Unknown]
  - Insomnia [Unknown]
  - Drug administration error [Unknown]

NARRATIVE: CASE EVENT DATE: 20130806
